FAERS Safety Report 17239974 (Version 1)
Quarter: 2020Q1

REPORT INFORMATION
  Report Type: Spontaneous
  Country: DE (occurrence: DE)
  Receive Date: 20200107
  Receipt Date: 20200107
  Transmission Date: 20200409
  Serious: Yes (Death, Hospitalization)
  Sender: FDA-Public Use
  Company Number: DE-TEVA-2019-DE-1161202

PATIENT
  Age: 73 Year
  Sex: Male

DRUGS (3)
  1. EFFENTORA [Suspect]
     Active Substance: FENTANYL CITRATE
     Dosage: 200 MICROGRAM
  2. FENTANYL. [Suspect]
     Active Substance: FENTANYL
     Dosage: 75 MICROGRAM , BAND AID TRANSDERMAL
     Route: 062
  3. METAMIZOL [Concomitant]
     Active Substance: METAMIZOLE SODIUM

REACTIONS (3)
  - Dizziness [Unknown]
  - Syncope [Unknown]
  - Nausea [Unknown]
